FAERS Safety Report 17161919 (Version 1)
Quarter: 2019Q4

REPORT INFORMATION
  Report Type: Spontaneous
  Country: ES (occurrence: ES)
  Receive Date: 20191217
  Receipt Date: 20191217
  Transmission Date: 20200122
  Serious: Yes (Life-Threatening)
  Sender: FDA-Public Use
  Company Number: ES-SUN PHARMACEUTICAL INDUSTRIES LTD-2019RR-230894

PATIENT
  Age: 86 Year
  Sex: Female

DRUGS (4)
  1. SINTROM [Interacting]
     Active Substance: ACENOCOUMAROL
     Indication: DEEP VEIN THROMBOSIS
     Dosage: ()
     Route: 048
     Dates: start: 2010, end: 20190812
  2. TRAMADOL HIDROCLORURO (2389CH) [Interacting]
     Active Substance: TRAMADOL
     Indication: PAIN
     Dosage: IN TOTAL
     Route: 048
     Dates: start: 20190726, end: 20190812
  3. PARACETAMOL [Suspect]
     Active Substance: ACETAMINOPHEN
     Indication: PAIN
     Dosage: 1 GRAM/8H
     Route: 048
     Dates: start: 20190808
  4. METAMIZOL [Interacting]
     Active Substance: METAMIZOLE SODIUM
     Indication: PAIN
     Dosage: 575 MILLIGRAM, UNK
     Route: 048
     Dates: start: 20190808

REACTIONS (1)
  - Upper gastrointestinal haemorrhage [Recovered/Resolved]

NARRATIVE: CASE EVENT DATE: 20190811
